FAERS Safety Report 11414870 (Version 1)
Quarter: 2015Q3

REPORT INFORMATION
  Report Type: Spontaneous
  Country: FI (occurrence: None)
  Receive Date: 20150821
  Receipt Date: 20150821
  Transmission Date: 20151125
  Serious: No
  Sender: FDA-Public Use
  Company Number: FI-LHC-2015104

PATIENT
  Age: 76 Year
  Sex: Male

DRUGS (1)
  1. CONOXIA (OXYGEN) ( INHALATION GAS) (OXYGEN) (VERUM) [Suspect]
     Active Substance: OXYGEN
     Indication: DYSPNOEA
     Dosage: INHALATION

REACTIONS (3)
  - Injury associated with device [None]
  - Frostbite [None]
  - Device malfunction [None]

NARRATIVE: CASE EVENT DATE: 20150807
